FAERS Safety Report 5480016-7 (Version None)
Quarter: 2007Q4

REPORT INFORMATION
  Report Type: 
  Country: None (occurrence: None)
  Receive Date: 20071008
  Receipt Date: 20070926
  Transmission Date: 20080405
  Serious: Yes (Other)
  Sender: FDA-Public Use
  Company Number: CA-PFIZER INC-2007081503

PATIENT
  Age: 61 Year
  Sex: Female

DRUGS (11)
  1. LYRICA [Suspect]
     Indication: NEURALGIA
     Route: 048
  2. PREDNISONE [Interacting]
     Indication: EYE OPERATION
     Route: 047
  3. KETOROLAC TROMETHAMINE [Interacting]
     Indication: EYE OPERATION
     Route: 047
  4. GATIFLOXACIN [Interacting]
     Indication: EYE OPERATION
     Route: 047
  5. ACETYLSALICYLIC ACID [Concomitant]
  6. SYNTHROID [Concomitant]
  7. SIMVASTATIN [Concomitant]
  8. ATENOLOL [Concomitant]
  9. FUROSEMIDE [Concomitant]
  10. SPIRONOLACTONE [Concomitant]
  11. ACTONEL [Concomitant]

REACTIONS (3)
  - DIARRHOEA [None]
  - DRUG INTERACTION [None]
  - EYE OPERATION [None]
